FAERS Safety Report 21297574 (Version 1)
Quarter: 2022Q3

REPORT INFORMATION
  Report Type: Spontaneous
  Country: US (occurrence: None)
  Receive Date: 20220902
  Receipt Date: 20220902
  Transmission Date: 20221026
  Serious: No
  Sender: FDA-Public Use
  Company Number: None

PATIENT
  Age: 78 Year
  Sex: Male
  Weight: 122.92 kg

DRUGS (1)
  1. SIMVASTATIN [Suspect]
     Active Substance: SIMVASTATIN
     Indication: Hyperlipidaemia
     Dosage: FREQUENCY : AT BEDTIME;?
     Route: 048
     Dates: start: 20180918, end: 20220627

REACTIONS (10)
  - Rhabdomyolysis [None]
  - Acute kidney injury [None]
  - Fall [None]
  - Walking aid user [None]
  - Gait disturbance [None]
  - Atrial fibrillation [None]
  - Hypertension [None]
  - Hyperlipidaemia [None]
  - Renal failure [None]
  - Obstructive sleep apnoea syndrome [None]

NARRATIVE: CASE EVENT DATE: 20220627
